FAERS Safety Report 18464321 (Version 1)
Quarter: 2020Q4

REPORT INFORMATION
  Report Type: Spontaneous
  Country: BR (occurrence: BR)
  Receive Date: 20201104
  Receipt Date: 20201104
  Transmission Date: 20210114
  Serious: No
  Sender: FDA-Public Use
  Company Number: BR-JAZZ-2019-BR-015438

PATIENT
  Age: 59 Year
  Sex: Male
  Weight: 72 kg

DRUGS (2)
  1. CYCLOSPORINE. [Concomitant]
     Active Substance: CYCLOSPORINE
     Indication: PROPHYLAXIS AGAINST GRAFT VERSUS HOST DISEASE
     Dosage: UNK
     Route: 042
     Dates: start: 20190913
  2. DEFITELIO [Suspect]
     Active Substance: DEFIBROTIDE SODIUM
     Indication: VENOOCCLUSIVE LIVER DISEASE
     Dosage: 1800 MG/DAY
     Route: 042
     Dates: start: 20191020, end: 20191110

REACTIONS (3)
  - Pyrexia [Recovered/Resolved]
  - Hypotension [Recovered/Resolved]
  - Stenotrophomonas test positive [Recovered/Resolved]

NARRATIVE: CASE EVENT DATE: 20191103
